FAERS Safety Report 22156431 (Version 1)
Quarter: 2023Q1

REPORT INFORMATION
  Report Type: Spontaneous
  Country: US (occurrence: US)
  Receive Date: 20230330
  Receipt Date: 20230330
  Transmission Date: 20230417
  Serious: No
  Sender: FDA-Public Use
  Company Number: US-SANOFI-01549824

PATIENT
  Sex: Male

DRUGS (1)
  1. DUPIXENT [Suspect]
     Active Substance: DUPILUMAB
     Indication: Product used for unknown indication
     Dosage: FIRST DUPIXENT INJECTION, 1X

REACTIONS (2)
  - Photosensitivity reaction [Not Recovered/Not Resolved]
  - Sunburn [Not Recovered/Not Resolved]
